FAERS Safety Report 20299386 (Version 3)
Quarter: 2022Q1

REPORT INFORMATION
  Report Type: Spontaneous
  Country: US (occurrence: US)
  Receive Date: 20220105
  Receipt Date: 20220222
  Transmission Date: 20220424
  Serious: No
  Sender: FDA-Public Use
  Company Number: US-PFIZER INC-202200004798

PATIENT
  Age: 47 Year
  Sex: Male
  Weight: 81.65 kg

DRUGS (1)
  1. PAXLOVID [Suspect]
     Active Substance: NIRMATRELVIR\RITONAVIR
     Indication: COVID-19
     Dosage: ONE TABLET OF 100MG RITONAVIR AND TWO TABLETS OF 150MG NIRMATELVIR EVERY 12 HOURS
     Route: 048
     Dates: start: 20220102

REACTIONS (1)
  - Dysgeusia [Unknown]

NARRATIVE: CASE EVENT DATE: 20220102
